FAERS Safety Report 7785359-X (Version None)
Quarter: 2011Q3

REPORT INFORMATION
  Report Type: 
  Country: None (occurrence: None)
  Receive Date: 20110929
  Receipt Date: 20110927
  Transmission Date: 20111222
  Serious: No
  Sender: FDA-Public Use
  Company Number: US-PFIZER INC-2011217547

PATIENT
  Sex: Male
  Weight: 73 kg

DRUGS (3)
  1. MAGNESIUM [Concomitant]
     Dosage: UNK
  2. LIPITOR [Suspect]
     Indication: BLOOD CHOLESTEROL INCREASED
     Dosage: 20 MG, 1X/DAY
     Route: 048
     Dates: start: 20100101, end: 20110914
  3. LIPITOR [Suspect]
     Dosage: UNK

REACTIONS (6)
  - MUSCULAR WEAKNESS [None]
  - FATIGUE [None]
  - PAIN [None]
  - MYALGIA [None]
  - PYREXIA [None]
  - OEDEMA [None]
